FAERS Safety Report 15239764 (Version 1)
Quarter: 2018Q3

REPORT INFORMATION
  Report Type: Other
  Country: US (occurrence: MX)
  Receive Date: 20180803
  Receipt Date: 20180803
  Transmission Date: 20181010
  Serious: Yes (Other)
  Sender: FDA-Public Use
  Company Number: MX-BRECKENRIDGE PHARMACEUTICAL, INC.-2053215

PATIENT
  Age: 69 Year
  Sex: Female

DRUGS (1)
  1. PRAMIPEXOLE. [Suspect]
     Active Substance: PRAMIPEXOLE

REACTIONS (2)
  - Intentional product use issue [Unknown]
  - Pituitary haemorrhage [Unknown]
